FAERS Safety Report 7475021-5 (Version None)
Quarter: 2011Q2

REPORT INFORMATION
  Report Type: 
  Country: None (occurrence: None)
  Receive Date: 20110509
  Receipt Date: 20110509
  Transmission Date: 20111010
  Serious: Yes (Life-Threatening)
  Sender: FDA-Public Use
  Company Number: None

PATIENT
  Age: 83 Year
  Sex: Female
  Weight: 49 kg

DRUGS (1)
  1. ARITHROMYCIN [Suspect]

REACTIONS (3)
  - DRUG HYPERSENSITIVITY [None]
  - URTICARIA [None]
  - HYPOTENSION [None]
